FAERS Safety Report 21994961 (Version 2)
Quarter: 2023Q1

REPORT INFORMATION
  Report Type: Spontaneous
  Country: BR (occurrence: None)
  Receive Date: 20230215
  Receipt Date: 20230217
  Transmission Date: 20230418
  Serious: Yes (Other)
  Sender: FDA-Public Use
  Company Number: 2023A035515

PATIENT
  Age: 60 Year
  Sex: Male

DRUGS (3)
  1. DAPAGLIFLOZIN [Suspect]
     Active Substance: DAPAGLIFLOZIN
     Indication: Diabetes mellitus
     Dosage: A TABLET
     Route: 048
     Dates: start: 20230117
  2. LOSARTAN [Concomitant]
     Active Substance: LOSARTAN
  3. ATENOLOL [Concomitant]
     Active Substance: ATENOLOL

REACTIONS (1)
  - Prostatic specific antigen increased [Unknown]

NARRATIVE: CASE EVENT DATE: 20230202
